FAERS Safety Report 8172548-8 (Version None)
Quarter: 2012Q1

REPORT INFORMATION
  Report Type: 
  Country: None (occurrence: None)
  Receive Date: 20120229
  Receipt Date: 20120217
  Transmission Date: 20120608
  Serious: Yes (Hospitalization)
  Sender: FDA-Public Use
  Company Number: US-BAYER-2011-051397

PATIENT
  Age: 17 Year
  Sex: Female
  Weight: 113.38 kg

DRUGS (8)
  1. YAZ [Suspect]
     Indication: CONTRACEPTION
     Dosage: UNK
     Dates: start: 20090204, end: 20090803
  2. CEFUROXIME SODIUM [Concomitant]
  3. METRONIDAZOLE [Concomitant]
  4. ALBUTEROL [Concomitant]
  5. LANSOPRAZOLE [Concomitant]
  6. ADVAIR DISKUS 100/50 [Concomitant]
  7. LEVOTHYROXINE SODIUM [Concomitant]
  8. NSAID'S [Concomitant]

REACTIONS (14)
  - PULMONARY EMBOLISM [None]
  - SYNCOPE [None]
  - ASTHENIA [None]
  - PAIN [None]
  - INJURY [None]
  - ANXIETY [None]
  - EMOTIONAL DISTRESS [None]
  - DISCOMFORT [None]
  - DYSPNOEA [None]
  - DYSSTASIA [None]
  - DEPRESSED MOOD [None]
  - ATELECTASIS [None]
  - FEAR [None]
  - NAUSEA [None]
